FAERS Safety Report 7682773-8 (Version None)
Quarter: 2011Q3

REPORT INFORMATION
  Report Type: 
  Country: None (occurrence: None)
  Receive Date: 20110815
  Receipt Date: 20110809
  Transmission Date: 20111222
  Serious: Yes (Life-Threatening)
  Sender: FDA-Public Use
  Company Number: JP-ASTRAZENECA-2011SE46918

PATIENT
  Age: 82 Year
  Sex: Male
  Weight: 54 kg

DRUGS (4)
  1. CASODEX [Suspect]
     Indication: PROSTATE CANCER
     Route: 048
     Dates: start: 20091116, end: 20101115
  2. ASPIRIN [Concomitant]
     Indication: ATRIAL FIBRILLATION
     Route: 048
  3. TAMSULOSIN HCL [Concomitant]
     Route: 048
     Dates: end: 20101101
  4. URIEF [Concomitant]
     Route: 048
     Dates: start: 20101101

REACTIONS (1)
  - DIABETIC KETOACIDOSIS [None]
